FAERS Safety Report 10174360 (Version 1)
Quarter: 2014Q2

REPORT INFORMATION
  Report Type: Spontaneous
  Country: US (occurrence: None)
  Receive Date: 20140514
  Receipt Date: 20140514
  Transmission Date: 20141212
  Serious: No
  Sender: FDA-Public Use
  Company Number: None

PATIENT
  Age: 51 Year
  Sex: Female
  Weight: 87 kg

DRUGS (2)
  1. CEFAZOLIN [Suspect]
     Indication: PROPHYLAXIS
     Route: 042
  2. CEFAZOLIN [Suspect]
     Indication: PREOPERATIVE CARE
     Route: 042

REACTIONS (4)
  - Feeling hot [None]
  - Pruritus [None]
  - Infusion related reaction [None]
  - Erythema [None]
